FAERS Safety Report 4711865-8 (Version None)
Quarter: 2005Q3

REPORT INFORMATION
  Report Type: 
  Country: None (occurrence: None)
  Receive Date: 20050708
  Receipt Date: 20050316
  Transmission Date: 20060218
  Serious: Yes (Other)
  Sender: FDA-Public Use
  Company Number: US-2005-004050

PATIENT

DRUGS (1)
  1. ULTRAVIST 300 [Suspect]
     Indication: COMPUTERISED TOMOGRAM ABDOMEN
     Dosage: 130 ML, 1 DOSE, INTRAVENOUS
     Route: 042
     Dates: start: 20050311, end: 20050311

REACTIONS (4)
  - COUGH [None]
  - NAUSEA [None]
  - OROPHARYNGEAL SWELLING [None]
  - TONGUE DISORDER [None]
